FAERS Safety Report 7411237-1 (Version None)
Quarter: 2011Q2

REPORT INFORMATION
  Report Type: 
  Country: None (occurrence: None)
  Receive Date: 20110413
  Receipt Date: 20100416
  Transmission Date: 20111010
  Serious: Yes (Hospitalization)
  Sender: FDA-Public Use
  Company Number: US-BRISTOL-MYERS SQUIBB COMPANY-15067242

PATIENT
  Age: 61 Year
  Sex: Male

DRUGS (4)
  1. NAMENDA [Concomitant]
     Indication: DEMENTIA ALZHEIMER'S TYPE
  2. ERBITUX [Suspect]
     Indication: HEAD AND NECK CANCER
     Dates: start: 20100331, end: 20100331
  3. NEURONTIN [Concomitant]
     Indication: NEUROPATHY PERIPHERAL
  4. TESTOSTERONE [Concomitant]
     Indication: BLOOD TESTOSTERONE DECREASED

REACTIONS (1)
  - HYPERSENSITIVITY [None]
